FAERS Safety Report 23148688 (Version 1)
Quarter: 2023Q4

REPORT INFORMATION
  Report Type: Spontaneous
  Country: US (occurrence: None)
  Receive Date: 20231103
  Receipt Date: 20231103
  Transmission Date: 20240109
  Serious: Yes (Other)
  Sender: FDA-Public Use
  Company Number: None

PATIENT
  Age: 46 Year
  Sex: Male
  Weight: 135 kg

DRUGS (3)
  1. EYEWASH [Suspect]
     Active Substance: WATER
     Indication: Dry eye
     Dosage: OTHER QUANTITY : 1 OUNCE(S);?FREQUENCY : TWICE A DAY;?
     Route: 047
  2. EYEWASH [Suspect]
     Active Substance: WATER
     Indication: Eye pruritus
  3. EYEWASH [Suspect]
     Active Substance: WATER
     Indication: Foreign body sensation in eyes

REACTIONS (2)
  - Visual impairment [None]
  - Vision blurred [None]

NARRATIVE: CASE EVENT DATE: 20231002
